FAERS Safety Report 19295781 (Version 3)
Quarter: 2022Q2

REPORT INFORMATION
  Report Type: Spontaneous
  Country: US (occurrence: US)
  Receive Date: 20210524
  Receipt Date: 20220411
  Transmission Date: 20220720
  Serious: No
  Sender: FDA-Public Use
  Company Number: US-PFIZER INC-2021465768

PATIENT
  Age: 71 Year
  Sex: Female

DRUGS (1)
  1. IBRANCE [Suspect]
     Active Substance: PALBOCICLIB
     Indication: Ovarian cancer
     Dosage: 125 MG

REACTIONS (5)
  - Drug ineffective [Unknown]
  - Hypoacusis [Unknown]
  - Fatigue [Unknown]
  - Infection [Unknown]
  - White blood cell count decreased [Unknown]
